FAERS Safety Report 13005191 (Version 1)
Quarter: 2016Q4

REPORT INFORMATION
  Report Type: Spontaneous
  Country: SE (occurrence: SE)
  Receive Date: 20161207
  Receipt Date: 20161207
  Transmission Date: 20170207
  Serious: Yes (Hospitalization)
  Sender: FDA-Public Use
  Company Number: SE-ASTRAZENECA-2016SF26805

PATIENT
  Age: 86 Year
  Sex: Female

DRUGS (14)
  1. ENALAPRIL [Concomitant]
     Active Substance: ENALAPRIL
  2. NASONEX [Concomitant]
     Active Substance: MOMETASONE FUROATE
  3. MINIDERM [Concomitant]
     Dosage: AS NECESSARY
  4. CANODERM [Concomitant]
     Dosage: AS NECESSARY
  5. BETAPRED [Concomitant]
     Active Substance: BETAMETHASONE SODIUM PHOSPHATE
     Dosage: AS NECESSARY
  6. SPIRONOLACTONE. [Concomitant]
     Active Substance: SPIRONOLACTONE
  7. METOPROLOL. [Concomitant]
     Active Substance: METOPROLOL
  8. TROMBYL [Suspect]
     Active Substance: ASPIRIN
     Route: 065
     Dates: start: 20140122
  9. ATORVASTATIN [Concomitant]
     Active Substance: ATORVASTATIN
  10. BRILIQUE [Suspect]
     Active Substance: TICAGRELOR
     Route: 048
     Dates: start: 20151206, end: 20161031
  11. NITROLINGUAL [Concomitant]
     Active Substance: NITROGLYCERIN
     Dosage: AS NECESSARY
  12. AERIUS [Concomitant]
     Active Substance: DESLORATADINE
  13. ROZEX (METRONIDAZOLE) [Concomitant]
     Active Substance: METRONIDAZOLE
  14. ALVEDON [Concomitant]
     Active Substance: ACETAMINOPHEN
     Dosage: AS NECESSARY

REACTIONS (4)
  - Cholelithiasis [Unknown]
  - Gastrointestinal haemorrhage [Recovered/Resolved]
  - Diverticulum intestinal [Unknown]
  - Dyspnoea [Unknown]

NARRATIVE: CASE EVENT DATE: 20161022
